FAERS Safety Report 11976018 (Version 3)
Quarter: 2016Q3

REPORT INFORMATION
  Report Type: Spontaneous
  Country: CO (occurrence: CO)
  Receive Date: 20160129
  Receipt Date: 20160928
  Transmission Date: 20161109
  Serious: Yes (Hospitalization, Disabling, Other)
  Sender: FDA-Public Use
  Company Number: CO-AMGEN-COLSP2016009991

PATIENT
  Age: 55 Year
  Sex: Male

DRUGS (1)
  1. ENBREL [Suspect]
     Active Substance: ETANERCEPT
     Indication: RHEUMATOID ARTHRITIS
     Dosage: 50 MG, WEEKLY
     Route: 058
     Dates: start: 2012

REACTIONS (14)
  - Localised infection [Unknown]
  - Peripheral swelling [Unknown]
  - Onychomycosis [Unknown]
  - Joint swelling [Unknown]
  - Infection [Unknown]
  - Joint abscess [Recovered/Resolved]
  - Pain [Not Recovered/Not Resolved]
  - Bacterial infection [Recovering/Resolving]
  - Nodule [Recovered/Resolved]
  - Bedridden [Recovering/Resolving]
  - Gait disturbance [Not Recovered/Not Resolved]
  - Fungal skin infection [Unknown]
  - Thrombophlebitis [Recovering/Resolving]
  - Furuncle [Unknown]

NARRATIVE: CASE EVENT DATE: 2015
